FAERS Safety Report 7692232-4 (Version None)
Quarter: 2011Q3

REPORT INFORMATION
  Report Type: 
  Country: None (occurrence: None)
  Receive Date: 20110818
  Receipt Date: 20110809
  Transmission Date: 20111222
  Serious: Yes (Hospitalization, Other)
  Sender: FDA-Public Use
  Company Number: US-ASTRAZENECA-2011SE27146

PATIENT
  Age: 59 Year
  Sex: Male

DRUGS (2)
  1. NESACAINE [Suspect]
     Route: 065
  2. NEXIUM [Suspect]
     Route: 048

REACTIONS (8)
  - NEOPLASM MALIGNANT [None]
  - CARDIAC OPERATION [None]
  - MYOCARDIAL INFARCTION [None]
  - CORONARY ARTERY BYPASS [None]
  - DYSPEPSIA [None]
  - DRUG DOSE OMISSION [None]
  - CEREBROVASCULAR ACCIDENT [None]
  - CARDIAC PACEMAKER INSERTION [None]
